FAERS Safety Report 6000154-X (Version None)
Quarter: 2008Q4

REPORT INFORMATION
  Report Type: 
  Country: None (occurrence: None)
  Receive Date: 20081211
  Receipt Date: 20081211
  Transmission Date: 20090506
  Serious: Yes (Other)
  Sender: FDA-Public Use
  Company Number: None

PATIENT
  Age: 52 Year
  Sex: Female
  Weight: 77.1115 kg

DRUGS (1)
  1. DIPRIVAN [Suspect]
     Indication: ANAESTHESIA
     Dosage: 260 MG IV BOLUS
     Route: 040
     Dates: start: 20080915, end: 20080915

REACTIONS (6)
  - BURNING SENSATION [None]
  - HALLUCINATION, VISUAL [None]
  - MYALGIA [None]
  - NAUSEA [None]
  - TREMOR [None]
  - WITHDRAWAL SYNDROME [None]
